FAERS Safety Report 10141364 (Version 2)
Quarter: 2014Q2

REPORT INFORMATION
  Report Type: Spontaneous
  Country: CN (occurrence: CN)
  Receive Date: 20140429
  Receipt Date: 20140517
  Transmission Date: 20141212
  Serious: Yes (Hospitalization, Other)
  Sender: FDA-Public Use
  Company Number: CN-JNJFOC-20140410235

PATIENT
  Age: 41 Year
  Sex: Female
  Weight: 52.5 kg

DRUGS (1)
  1. TYLENOL COLD [Suspect]
     Indication: NASOPHARYNGITIS
     Route: 048
     Dates: start: 20130107, end: 20130110

REACTIONS (1)
  - Drug-induced liver injury [Recovering/Resolving]
